FAERS Safety Report 8376880-4 (Version None)
Quarter: 2012Q2

REPORT INFORMATION
  Report Type: 
  Country: None (occurrence: None)
  Receive Date: 20120522
  Receipt Date: 20120510
  Transmission Date: 20120825
  Serious: Yes (Hospitalization)
  Sender: FDA-Public Use
  Company Number: CA-JNJFOC-20120311176

PATIENT
  Sex: Male
  Weight: 61.24 kg

DRUGS (6)
  1. ARTHROTEC [Concomitant]
     Route: 065
  2. REMICADE [Suspect]
     Dosage: 17TH INFUSION
     Route: 042
  3. ALL OTHER THERAPEUTICS [Concomitant]
     Route: 065
  4. REMICADE [Suspect]
     Indication: ANKYLOSING SPONDYLITIS
     Route: 042
  5. REMICADE [Suspect]
     Indication: CROHN'S DISEASE
     Route: 042
  6. REMICADE [Suspect]
     Dosage: 17TH INFUSION
     Route: 042

REACTIONS (4)
  - COMA [None]
  - MALAISE [None]
  - PNEUMONIA [None]
  - BETA HAEMOLYTIC STREPTOCOCCAL INFECTION [None]
